FAERS Safety Report 14317804 (Version 1)
Quarter: 2017Q4

REPORT INFORMATION
  Report Type: Spontaneous
  Country: US (occurrence: US)
  Receive Date: 20171222
  Receipt Date: 20171222
  Transmission Date: 20180321
  Serious: Yes (Other)
  Sender: FDA-Public Use
  Company Number: US-PURDUE-USA-2017-0142074

PATIENT
  Age: 57 Year
  Sex: Female

DRUGS (2)
  1. COLACE CLEAR [Suspect]
     Active Substance: DOCUSATE SODIUM
     Indication: DIVERTICULITIS
     Dosage: 50 MG, DAILY
     Route: 048
     Dates: start: 20171202
  2. COLACE CLEAR [Suspect]
     Active Substance: DOCUSATE SODIUM
     Dosage: 50 MG, DAILY
     Route: 048

REACTIONS (2)
  - Abdominal distension [Not Recovered/Not Resolved]
  - Abdominal pain upper [Not Recovered/Not Resolved]

NARRATIVE: CASE EVENT DATE: 20171204
